FAERS Safety Report 9192767 (Version 1)
Quarter: 2013Q1

REPORT INFORMATION
  Report Type: Spontaneous
  Country: GB (occurrence: None)
  Receive Date: 20130325
  Receipt Date: 20130325
  Transmission Date: 20140127
  Serious: Yes (Other)
  Sender: FDA-Public Use
  Company Number: ENTC2013-0101

PATIENT
  Sex: Male

DRUGS (1)
  1. STALEVO (LEVODOPA, CARBIDOPA, ENTACAPONE) [Suspect]

REACTIONS (3)
  - Transient ischaemic attack [None]
  - Agitation [None]
  - Aggression [None]
